FAERS Safety Report 6255193-0 (Version None)
Quarter: 2009Q3

REPORT INFORMATION
  Report Type: 
  Country: None (occurrence: None)
  Receive Date: 20090702
  Receipt Date: 20090311
  Transmission Date: 20100115
  Serious: No
  Sender: FDA-Public Use
  Company Number: US-BAYER-200917465NA

PATIENT
  Age: 60 Year
  Sex: Female

DRUGS (2)
  1. ULTRAVIST 300 [Suspect]
     Indication: COMPUTERISED TOMOGRAM ABDOMEN
     Dosage: TOTAL DAILY DOSE: 75 ML  UNIT DOSE: 100 ML
     Route: 042
     Dates: start: 20090303, end: 20090303
  2. UNKNOWN ORAL CONTRAST [Concomitant]
     Route: 048
     Dates: start: 20090303, end: 20090303

REACTIONS (2)
  - DYSPHAGIA [None]
  - THROAT IRRITATION [None]
